FAERS Safety Report 5611445-6 (Version None)
Quarter: 2008Q1

REPORT INFORMATION
  Report Type: 
  Country: None (occurrence: None)
  Receive Date: 20080201
  Receipt Date: 20080122
  Transmission Date: 20080703
  Serious: Yes (Hospitalization, Other)
  Sender: FDA-Public Use
  Company Number: US-ELI_LILLY_AND_COMPANY-US200801004556

PATIENT
  Age: 30 Year
  Sex: Male

DRUGS (1)
  1. HUMULIN 70/30 [Suspect]

REACTIONS (3)
  - ANAPHYLACTIC REACTION [None]
  - BLOOD GLUCOSE INCREASED [None]
  - CHEST PAIN [None]
